FAERS Safety Report 5322725-6 (Version None)
Quarter: 2007Q2

REPORT INFORMATION
  Report Type: 
  Country: None (occurrence: None)
  Receive Date: 20070511
  Receipt Date: 20070504
  Transmission Date: 20071010
  Serious: Yes (Other)
  Sender: FDA-Public Use
  Company Number: DE-SHR-DE-2007-016140

PATIENT
  Sex: Female

DRUGS (2)
  1. MIRENA [Suspect]
     Dosage: 20 A?G/DAY, CONT
     Route: 015
  2. MIRENA [Suspect]
     Dosage: 20 A?G/DAY, UNK
     Route: 015

REACTIONS (1)
  - BREAST CANCER FEMALE [None]
